APPROVED DRUG PRODUCT: INNOFEM
Active Ingredient: ESTRADIOL
Strength: 2MG
Dosage Form/Route: TABLET;ORAL
Application: A040312 | Product #003
Applicant: NOVO NORDISK INC
Approved: Nov 19, 1999 | RLD: No | RS: No | Type: DISCN